FAERS Safety Report 10424280 (Version 2)
Quarter: 2014Q3

REPORT INFORMATION
  Report Type: Report from Study
  Country: US (occurrence: US)
  Receive Date: 20140902
  Receipt Date: 20140929
  Transmission Date: 20150326
  Serious: Yes (Other)
  Sender: FDA-Public Use
  Company Number: PHEH2014US017240

PATIENT
  Sex: Male

DRUGS (1)
  1. EXJADE [Suspect]
     Active Substance: DEFERASIROX
     Indication: IRON OVERLOAD
     Dosage: 500 MG, TID
     Route: 048

REACTIONS (4)
  - Paroxysmal nocturnal haemoglobinuria [Unknown]
  - Platelet count decreased [Unknown]
  - Bone marrow disorder [Unknown]
  - Drug ineffective [Unknown]
